FAERS Safety Report 18800045 (Version 4)
Quarter: 2021Q2

REPORT INFORMATION
  Report Type: Other
  Country: US (occurrence: US)
  Receive Date: 20210128
  Receipt Date: 20210428
  Transmission Date: 20210717
  Serious: Yes (Hospitalization, Other)
  Sender: FDA-Public Use
  Company Number: US-AMAG PHARMACEUTICALS, INC.-AMAG202100168

PATIENT
  Age: 31 Year
  Sex: Female
  Weight: 90.8 kg

DRUGS (3)
  1. FOLIC ACID. [Concomitant]
     Active Substance: FOLIC ACID
     Indication: PREGNANCY
     Dosage: 0.4 MG 1 TAB DAILY
  2. MAKENA [Suspect]
     Active Substance: HYDROXYPROGESTERONE CAPROATE
     Indication: PREMATURE DELIVERY
     Dosage: 275MG/1.1ML
     Route: 058
     Dates: start: 20201008, end: 20210107
  3. PNV [Concomitant]
     Indication: PREGNANCY
     Dosage: 1 TAB DAILY

REACTIONS (2)
  - Premature delivery [Recovered/Resolved]
  - Bacterial vulvovaginitis [Unknown]

NARRATIVE: CASE EVENT DATE: 20210106
